FAERS Safety Report 7240864-X (Version None)
Quarter: 2011Q1

REPORT INFORMATION
  Report Type: 
  Country: None (occurrence: None)
  Receive Date: 20110120
  Receipt Date: 20110120
  Transmission Date: 20110831
  Serious: No
  Sender: FDA-Public Use
  Company Number: None

PATIENT
  Sex: Male
  Weight: 90.7194 kg

DRUGS (1)
  1. ULORIC [Suspect]
     Indication: NONSPECIFIC REACTION
     Dosage: 1  2 DAYS ORAL
     Route: 048
     Dates: start: 20101220, end: 20101221

REACTIONS (1)
  - FAECES DISCOLOURED [None]
